FAERS Safety Report 24839246 (Version 1)
Quarter: 2025Q1

REPORT INFORMATION
  Report Type: Spontaneous
  Country: US (occurrence: US)
  Receive Date: 20250114
  Receipt Date: 20250114
  Transmission Date: 20250409
  Serious: No
  Sender: IBSA INSTITUT BIOCHIMIQUE
  Company Number: US-IBSA PHARMA INC.-2024IBS000045

PATIENT

DRUGS (1)
  1. TIROSINT-SOL [Suspect]
     Active Substance: LEVOTHYROXINE SODIUM
     Indication: Hypothyroidism
     Route: 048
     Dates: start: 20230701

REACTIONS (10)
  - Weight increased [Unknown]
  - Nasopharyngitis [Unknown]
  - Brain fog [Unknown]
  - Disturbance in attention [Unknown]
  - Dry skin [Unknown]
  - Abdominal distension [Unknown]
  - Fatigue [Unknown]
  - Drug ineffective [Unknown]
  - Product taste abnormal [Unknown]
  - Product quality issue [Unknown]
